FAERS Safety Report 14181958 (Version 2)
Quarter: 2018Q1

REPORT INFORMATION
  Report Type: Report from Study
  Country: DE (occurrence: DE)
  Receive Date: 20171113
  Receipt Date: 20180319
  Transmission Date: 20180508
  Serious: Yes (Hospitalization)
  Sender: FDA-Public Use
  Company Number: DE-ROCHE-2023459

PATIENT
  Age: 36 Year
  Sex: Male
  Weight: 68 kg

DRUGS (10)
  1. BEVACIZUMAB. [Suspect]
     Active Substance: BEVACIZUMAB
     Route: 042
     Dates: start: 20110518, end: 20110518
  2. BEVACIZUMAB. [Suspect]
     Active Substance: BEVACIZUMAB
     Dosage: DAY 15 OF 1ST CYCLE
     Route: 042
     Dates: start: 20110420, end: 20110420
  3. NOVALGIN (METAMIZOLE SODIUM) [Concomitant]
     Active Substance: METAMIZOLE SODIUM
     Dosage: IF REQUIRED
     Route: 065
  4. ZOMETA [Concomitant]
     Active Substance: ZOLEDRONIC ACID
     Indication: METASTASES TO BONE
     Route: 042
  5. BEVACIZUMAB. [Suspect]
     Active Substance: BEVACIZUMAB
     Dosage: DAY 1 OF 2ND CYCLE
     Route: 042
     Dates: start: 20110504, end: 20110504
  6. PARACETAMOL [Suspect]
     Active Substance: ACETAMINOPHEN
     Indication: PRODUCT USED FOR UNKNOWN INDICATION
     Route: 065
  7. INTERFERON ALFA-2A [Suspect]
     Active Substance: INTERFERON ALFA-2A
     Indication: METASTATIC RENAL CELL CARCINOMA
     Dosage: ON DAY 1,3,5,8,10,12,15,17,19,22,24,26 OF A CYCLE OF 4 WEEKS
     Route: 058
     Dates: start: 20110406, end: 20110529
  8. TAVEGIL [Concomitant]
     Active Substance: CLEMASTINE FUMARATE
  9. INTRON A [Concomitant]
     Active Substance: INTERFERON ALFA-2B
     Route: 065
  10. BEVACIZUMAB. [Suspect]
     Active Substance: BEVACIZUMAB
     Indication: METASTATIC RENAL CELL CARCINOMA
     Dosage: DAY 1 OF 1ST CYCLE, ACCORDING 10 MG/KG
     Route: 042
     Dates: start: 20110406, end: 20110406

REACTIONS (3)
  - Hepatic failure [Recovered/Resolved]
  - Hepatotoxicity [Recovering/Resolving]
  - Rash [Recovered/Resolved]

NARRATIVE: CASE EVENT DATE: 20110520
